FAERS Safety Report 5469439-X (Version None)
Quarter: 2007Q3

REPORT INFORMATION
  Report Type: 
  Country: None (occurrence: None)
  Receive Date: 20070924
  Receipt Date: 20070911
  Transmission Date: 20080115
  Serious: Yes (Other)
  Sender: FDA-Public Use
  Company Number: 161453ISR

PATIENT
  Age: 23 Year
  Sex: Female

DRUGS (2)
  1. COPAXONE [Suspect]
     Indication: RELAPSING-REMITTING MULTIPLE SCLEROSIS
     Dosage: 20 MG (20 MG,1 - 2) (20 MG, 1 IN 1 D)  SUBCUTANEOUS
     Route: 058
     Dates: start: 20041213, end: 20070612
  2. INTERFERON BETA [Suspect]
     Indication: RELAPSING-REMITTING MULTIPLE SCLEROSIS
     Dosage: 125 MCG (250 MCG, 1 IN 2 D) SUBCUTANEOUS
     Route: 058
     Dates: start: 20070613, end: 20070615

REACTIONS (3)
  - DRUG EXPOSURE DURING PREGNANCY [None]
  - INTRA-UTERINE DEATH [None]
  - PREGNANCY [None]
